FAERS Safety Report 9481994 (Version 2)
Quarter: 2013Q4

REPORT INFORMATION
  Report Type: Spontaneous
  Country: GB (occurrence: GB)
  Receive Date: 20130828
  Receipt Date: 20131023
  Transmission Date: 20140711
  Serious: Yes (Hospitalization, Other)
  Sender: FDA-Public Use
  Company Number: GB-ASTRAZENECA-2013SE64330

PATIENT
  Age: 19330 Day
  Sex: Male
  Weight: 83 kg

DRUGS (8)
  1. BRILIQUE [Suspect]
     Indication: MYOCARDIAL INFARCTION
     Route: 048
     Dates: start: 20130422, end: 20130523
  2. SIMVASTATIN [Concomitant]
  3. ASPIRIN [Concomitant]
     Route: 048
  4. BISOPROLOL [Concomitant]
     Route: 048
  5. CANDESARTAN [Concomitant]
     Route: 048
  6. FUROSEMIDE [Concomitant]
     Route: 048
  7. DIGOXIN [Concomitant]
     Route: 048
  8. NOVORAPID INSULIN [Concomitant]

REACTIONS (1)
  - Liver disorder [Recovering/Resolving]
